FAERS Safety Report 5517633-1 (Version None)
Quarter: 2007Q4

REPORT INFORMATION
  Report Type: 
  Country: None (occurrence: None)
  Receive Date: 20071114
  Receipt Date: 20071108
  Transmission Date: 20080405
  Serious: Yes (Other)
  Sender: FDA-Public Use
  Company Number: US-ROXANE LABORATORIES, INC-2007-BP-24224RO

PATIENT
  Age: 71 Year
  Sex: Male

DRUGS (11)
  1. MEGESTROL ACETATE [Suspect]
     Indication: CACHEXIA
  2. OXYCODONE HCL [Suspect]
     Indication: PAIN
     Route: 048
  3. ESCITALOPRAM [Suspect]
     Indication: DEPRESSION
  4. LEVOTHYROXINE SODIUM [Suspect]
     Indication: HYPOTHYROIDISM
  5. FLUDROCORTISONE ACETATE [Suspect]
  6. TESTOSTERONE [Concomitant]
     Route: 061
  7. PACLITAXEL [Concomitant]
     Indication: CHEMOTHERAPY
  8. CARBOPLATIN [Concomitant]
     Indication: CHEMOTHERAPY
  9. CAPECITABINE [Concomitant]
     Indication: CHEMOTHERAPY
  10. DEXAMETHASONE [Concomitant]
  11. METHYLPHENIDATE HCL [Concomitant]

REACTIONS (3)
  - ADRENAL INSUFFICIENCY [None]
  - BLOOD THYROID STIMULATING HORMONE DECREASED [None]
  - HYPOGONADISM [None]
